FAERS Safety Report 13119860 (Version 1)
Quarter: 2017Q1

REPORT INFORMATION
  Report Type: Spontaneous
  Country: IT (occurrence: IT)
  Receive Date: 20170117
  Receipt Date: 20170117
  Transmission Date: 20170428
  Serious: Yes (Death, Life-Threatening, Disabling, Other)
  Sender: FDA-Public Use
  Company Number: IT-BRISTOL-MYERS SQUIBB COMPANY-BMS-2017-001422

PATIENT
  Age: 80 Year
  Sex: Male

DRUGS (1)
  1. COUMADIN [Suspect]
     Active Substance: WARFARIN SODIUM
     Indication: THROMBOSIS
     Dosage: 5 MG, QD
     Route: 048
     Dates: start: 20160805, end: 20161216

REACTIONS (2)
  - Cerebral haemorrhage [Fatal]
  - Fall [Unknown]

NARRATIVE: CASE EVENT DATE: 20161216
